FAERS Safety Report 8314660-6 (Version None)
Quarter: 2012Q1

REPORT INFORMATION
  Report Type: 
  Country: None (occurrence: None)
  Receive Date: 20120315
  Receipt Date: 20110426
  Transmission Date: 20120608
  Serious: Yes (Other)
  Sender: FDA-Public Use
  Company Number: PHHY2011US23423

PATIENT
  Age: 42 Year
  Sex: Female

DRUGS (3)
  1. GILENYA [Suspect]
     Indication: RELAPSING-REMITTING MULTIPLE SCLEROSIS
     Dosage: 0.5 MG, QD, ORAL
     Route: 048
     Dates: start: 20110315, end: 20110411
  2. MARIJUANA (CANNABIS, CANNABIS SATIVA) [Concomitant]
  3. DITROPAN [Concomitant]

REACTIONS (9)
  - ATAXIA [None]
  - PARAESTHESIA [None]
  - DRUG INEFFECTIVE [None]
  - HYPOAESTHESIA [None]
  - CENTRAL NERVOUS SYSTEM LESION [None]
  - BALANCE DISORDER [None]
  - MULTIPLE SCLEROSIS RELAPSE [None]
  - DEPRESSION [None]
  - CONCOMITANT DISEASE AGGRAVATED [None]
